FAERS Safety Report 22126352 (Version 1)
Quarter: 2023Q1

REPORT INFORMATION
  Report Type: Spontaneous
  Country: US (occurrence: US)
  Receive Date: 20230322
  Receipt Date: 20230322
  Transmission Date: 20230417
  Serious: No
  Sender: FDA-Public Use
  Company Number: US-TAKEDA-2023TUS026668

PATIENT
  Sex: Male
  Weight: 95 kg

DRUGS (1)
  1. TRINTELLIX [Suspect]
     Active Substance: VORTIOXETINE HYDROBROMIDE
     Indication: Depression
     Dosage: 20 MILLIGRAM
     Route: 065

REACTIONS (5)
  - Abnormal behaviour [Unknown]
  - Insomnia [Unknown]
  - Muscle spasms [Unknown]
  - Inappropriate schedule of product administration [Unknown]
  - Agitation [Unknown]
